FAERS Safety Report 8221127-2 (Version None)
Quarter: 2012Q1

REPORT INFORMATION
  Report Type: 
  Country: None (occurrence: None)
  Receive Date: 20120307
  Receipt Date: 20101217
  Transmission Date: 20120608
  Serious: No
  Sender: FDA-Public Use
  Company Number: PHHY2010US83221

PATIENT
  Age: 11 Year
  Sex: Female
  Weight: 46 kg

DRUGS (2)
  1. AFINITOR [Suspect]
     Indication: ASTROCYTOMA
     Dosage: 2.5 MG DAILY, ORAL
     Route: 048
     Dates: start: 20101130
  2. TRILEPTAL [Concomitant]

REACTIONS (9)
  - EYE IRRITATION [None]
  - ACTIVITIES OF DAILY LIVING IMPAIRED [None]
  - HYPERSOMNIA [None]
  - FATIGUE [None]
  - SWELLING FACE [None]
  - COORDINATION ABNORMAL [None]
  - IRRITABILITY [None]
  - POLYDIPSIA [None]
  - BALANCE DISORDER [None]
